FAERS Safety Report 24006676 (Version 3)
Quarter: 2025Q1

REPORT INFORMATION
  Report Type: Spontaneous
  Country: IN (occurrence: IN)
  Receive Date: 20240624
  Receipt Date: 20250108
  Transmission Date: 20250409
  Serious: Yes (Death, Other)
  Sender: PFIZER
  Company Number: IN-PFIZER INC-PV202200097872

PATIENT
  Age: 53 Year
  Sex: Female

DRUGS (1)
  1. CRIZOTINIB [Suspect]
     Active Substance: CRIZOTINIB
     Dosage: 250 MG, 2X/DAY
     Route: 048

REACTIONS (5)
  - Cardiopulmonary failure [Fatal]
  - Blood glucose increased [Unknown]
  - Ageusia [Unknown]
  - Eye disorder [Unknown]
  - Visual impairment [Unknown]

NARRATIVE: CASE EVENT DATE: 20240101
